FAERS Safety Report 5068815-7 (Version None)
Quarter: 2006Q3

REPORT INFORMATION
  Report Type: 
  Country: None (occurrence: None)
  Receive Date: 20060802
  Receipt Date: 20060412
  Transmission Date: 20061208
  Serious: No
  Sender: FDA-Public Use
  Company Number: US-BRISTOL-MYERS SQUIBB COMPANY-13345509

PATIENT
  Sex: Male

DRUGS (2)
  1. COUMADIN [Suspect]
     Indication: MYOCARDIAL INFARCTION
  2. COUMADIN [Suspect]
     Indication: CORONARY ARTERY BYPASS

REACTIONS (3)
  - BREATH ODOUR [None]
  - DYSGEUSIA [None]
  - SKIN ODOUR ABNORMAL [None]
